FAERS Safety Report 4663338-9 (Version None)
Quarter: 2005Q2

REPORT INFORMATION
  Report Type: 
  Country: None (occurrence: None)
  Receive Date: 20050517
  Receipt Date: 20050512
  Transmission Date: 20051028
  Serious: Yes (Other)
  Sender: FDA-Public Use
  Company Number: 200510949DE

PATIENT
  Age: 67 Year
  Sex: Male
  Weight: 102 kg

DRUGS (4)
  1. TAXOTERE [Suspect]
     Indication: NON-SMALL CELL LUNG CANCER
     Dates: start: 20040105, end: 20040105
  2. CARBOPLATIN [Concomitant]
     Indication: NON-SMALL CELL LUNG CANCER
     Dates: start: 20040105, end: 20040105
  3. ANTIEMETICS AND ANTINAUSEANTS [Concomitant]
  4. CORTICOSTEROIDS [Concomitant]

REACTIONS (4)
  - DERMATITIS [None]
  - DIARRHOEA [None]
  - LEUKOPENIA [None]
  - RENAL FAILURE CHRONIC [None]
